FAERS Safety Report 8102493-5 (Version None)
Quarter: 2011Q4

REPORT INFORMATION
  Report Type: 
  Country: None (occurrence: None)
  Receive Date: 20111222
  Receipt Date: 20110831
  Transmission Date: 20120403
  Serious: Yes (Hospitalization)
  Sender: FDA-Public Use
  Company Number: UTC-009873

PATIENT
  Age: 63 Year
  Sex: Male
  Weight: 104.5 kg

DRUGS (1)
  1. TYVASO [Suspect]
     Indication: PULMONARY HYPERTENSION
     Dosage: (72 MCG, 4 SESSION), INHALATION
     Route: 055
     Dates: start: 20110215

REACTIONS (1)
  - STAPHYLOCOCCAL INFECTION [None]
